FAERS Safety Report 20089542 (Version 7)
Quarter: 2022Q1

REPORT INFORMATION
  Report Type: Spontaneous
  Country: CZ (occurrence: CZ)
  Receive Date: 20211119
  Receipt Date: 20220318
  Transmission Date: 20220424
  Serious: Yes (Hospitalization, Other)
  Sender: FDA-Public Use
  Company Number: CZ-002147023-NVSC2021CZ247655

PATIENT

DRUGS (23)
  1. SOLIFENACIN [Suspect]
     Active Substance: SOLIFENACIN
     Indication: Urinary tract infection
     Dosage: 10 MG, QD (1-0-0)
     Route: 065
  2. SOLIFENACIN [Suspect]
     Active Substance: SOLIFENACIN
     Indication: Urinary retention
  3. SOLIFENACIN [Suspect]
     Active Substance: SOLIFENACIN
     Indication: Dysuria
  4. SOLIFENACIN [Suspect]
     Active Substance: SOLIFENACIN
     Indication: Urinary tract infection
  5. DOXAZOSIN [Suspect]
     Active Substance: DOXAZOSIN MESYLATE
     Indication: Hypertension
     Dosage: 4 MG, QD (0-0-1)
     Route: 048
  6. DOXAZOSIN [Suspect]
     Active Substance: DOXAZOSIN MESYLATE
     Indication: Lower urinary tract symptoms
  7. DESMOPRESSIN [Suspect]
     Active Substance: DESMOPRESSIN
     Indication: Lower urinary tract symptoms
     Dosage: 60 UG, QD (0-0-0-0-1)
     Route: 065
  8. DESMOPRESSIN [Suspect]
     Active Substance: DESMOPRESSIN
     Dosage: DESMOPRESSIN 60 UG 0-0-0-1
     Route: 065
  9. DARIFENACIN 15 MG [Suspect]
     Active Substance: DARIFENACIN HYDROBROMIDE
     Indication: Urinary retention
     Dosage: 15 MG, QD (1-0-0)
     Route: 065
  10. DARIFENACIN 15 MG [Suspect]
     Active Substance: DARIFENACIN HYDROBROMIDE
     Indication: Dysuria
  11. DARIFENACIN 15 MG [Suspect]
     Active Substance: DARIFENACIN HYDROBROMIDE
     Indication: Urinary tract infection
  12. DARIFENACIN 15 MG [Suspect]
     Active Substance: DARIFENACIN HYDROBROMIDE
     Indication: Lower urinary tract symptoms
  13. GABAPENTIN [Suspect]
     Active Substance: GABAPENTIN
     Indication: Epilepsy
     Dosage: 100 MG, TID (1-1-1) (NEWLY ABOUT 14 DAYS)
     Route: 065
  14. LEVETIRACETAM [Suspect]
     Active Substance: LEVETIRACETAM
     Indication: Epilepsy
     Route: 065
  15. LEVETIRACETAM [Suspect]
     Active Substance: LEVETIRACETAM
     Dosage: 500 MG, BID (1-0-1)
     Route: 065
  16. OMEPRAZOLE [Suspect]
     Active Substance: OMEPRAZOLE
     Indication: Product used for unknown indication
     Dosage: 20 MG, QD(1-0-0)
     Route: 065
  17. LERCANIDIPINE 20 mg [Concomitant]
     Indication: Product used for unknown indication
     Dosage: 20 MG, QD (0-0-1)
     Route: 065
  18. ATORVASTATIN 15 mg [Concomitant]
     Indication: Product used for unknown indication
     Dosage: 15 MG, QD (0-0-1)
     Route: 065
  19. ASPIRIN [Concomitant]
     Active Substance: ASPIRIN
     Indication: Product used for unknown indication
     Dosage: 100 MG, QD (1-0-0), 100 MG, THRICE DAILY (1-1-1) (NEWLY ABOUT 14 DAYS)
     Route: 065
  20. PERINDOPRIL 4 mg [Concomitant]
     Indication: Cardiac failure
     Dosage: 4 MG, QD (1-0-0)
     Route: 065
  21. BISOPROLOL [Concomitant]
     Active Substance: BISOPROLOL
     Indication: Cardiac failure
     Dosage: 5 MG, QD (1-0-0)
     Route: 065
  22. SPIRONOLACTONE 25 mg Tablet [Concomitant]
     Indication: Cardiac failure
     Dosage: 25 MG, QD (1-0-0)
     Route: 048
  23. NaCl 1000 mg [Concomitant]
     Dosage: 1000 MG, TWICE DAILY (1-0-1) (INDIVIDUALY PREPARED CAPSULES)
     Route: 048

REACTIONS (15)
  - Hyponatraemia [Recovered/Resolved]
  - Concomitant disease aggravated [Unknown]
  - Peripheral swelling [Recovered/Resolved]
  - Cognitive disorder [Unknown]
  - Duplicate therapy error [Unknown]
  - Dysuria [Unknown]
  - Urinary tract infection [Unknown]
  - Urinary retention [Unknown]
  - Product use in unapproved indication [Unknown]
  - Off label use [Unknown]
  - Overdose [Unknown]
  - Drug interaction [Recovered/Resolved]
  - Intentional product misuse [Recovered/Resolved]
  - Condition aggravated [Recovered/Resolved]
  - Product use issue [Unknown]
